FAERS Safety Report 6313239 (Version 2)
Quarter: 2014Q3

REPORT INFORMATION
  Report Type: Spontaneous
  Country: BE (occurrence: BE)
  Receive Date: 20070516
  Receipt Date: 20140916
  Transmission Date: 20150326
  Serious: Yes (Other)
  Sender: FDA-Public Use
  Company Number: BE-JNJFOC-20070501716

PATIENT
  Age: 52 Year
  Sex: Male

DRUGS (4)
  1. INFLIXIMAB [Suspect]
     Active Substance: INFLIXIMAB
     Indication: INFLAMMATORY BOWEL DISEASE
     Route: 042
  2. AZATHIOPRINE. [Concomitant]
     Active Substance: AZATHIOPRINE
  3. METHOTREXATE [Concomitant]
     Active Substance: METHOTREXATE
  4. ADALIMUMAB [Concomitant]
     Active Substance: ADALIMUMAB

REACTIONS (2)
  - Basal cell carcinoma [Unknown]
  - Renal cell carcinoma [Unknown]
